FAERS Safety Report 20955038 (Version 1)
Quarter: 2022Q2

REPORT INFORMATION
  Report Type: Spontaneous
  Country: US (occurrence: US)
  Receive Date: 20220614
  Receipt Date: 20220614
  Transmission Date: 20220720
  Serious: No
  Sender: FDA-Public Use
  Company Number: US-BRISTOL-MYERS SQUIBB COMPANY-2022-053067

PATIENT
  Age: 90 Year
  Sex: Male
  Weight: 65.31 kg

DRUGS (1)
  1. REVLIMID [Suspect]
     Active Substance: LENALIDOMIDE
     Indication: Product used for unknown indication
     Dosage: FREQUENCY: 3W ON 1W OFF
     Route: 048
     Dates: start: 20220405, end: 20220526

REACTIONS (1)
  - Hypotension [Recovered/Resolved]
